FAERS Safety Report 25732620 (Version 1)
Quarter: 2025Q3

REPORT INFORMATION
  Report Type: Spontaneous
  Country: CN (occurrence: CN)
  Receive Date: 20250827
  Receipt Date: 20250827
  Transmission Date: 20251021
  Serious: Yes (Other)
  Sender: MERCK SHARP & DOHME LLC
  Company Number: CN-009507513-2322519

PATIENT
  Age: 89 Year
  Sex: Male

DRUGS (5)
  1. IMIPENEM AND CILASTATIN [Suspect]
     Active Substance: CILASTATIN SODIUM\IMIPENEM
     Indication: Anti-infective therapy
     Route: 041
     Dates: start: 20200910, end: 20200915
  2. CEFTAZIDIME [Suspect]
     Active Substance: CEFTAZIDIME
     Indication: Anti-infective therapy
     Route: 041
     Dates: start: 20200818, end: 20200819
  3. BIAPENEM [Suspect]
     Active Substance: BIAPENEM
     Indication: Anti-infective therapy
     Route: 041
     Dates: start: 20200823, end: 20200828
  4. BIAPENEM [Suspect]
     Active Substance: BIAPENEM
     Indication: Anti-infective therapy
     Route: 041
     Dates: start: 20200909, end: 20200910
  5. CEFOPERAZONE\SULBACTAM [Suspect]
     Active Substance: CEFOPERAZONE\SULBACTAM
     Indication: Anti-infective therapy
     Route: 041
     Dates: start: 20200819, end: 20200823

REACTIONS (2)
  - Drug reaction with eosinophilia and systemic symptoms [Recovering/Resolving]
  - Cross sensitivity reaction [Recovering/Resolving]

NARRATIVE: CASE EVENT DATE: 20200819
